FAERS Safety Report 23958214 (Version 3)
Quarter: 2025Q1

REPORT INFORMATION
  Report Type: Spontaneous
  Country: US (occurrence: US)
  Receive Date: 20240610
  Receipt Date: 20250127
  Transmission Date: 20250409
  Serious: Yes (Other)
  Sender: PFIZER
  Company Number: US-PFIZER INC-202400189304

PATIENT
  Age: 68 Year
  Sex: Female

DRUGS (15)
  1. XELJANZ [Suspect]
     Active Substance: TOFACITINIB CITRATE
     Dosage: 5 MG, 2X/DAY
     Route: 048
  2. XELJANZ [Suspect]
     Active Substance: TOFACITINIB CITRATE
     Dosage: 5MG ORAL TWICE A DAY
     Route: 048
     Dates: start: 2016
  3. XELJANZ [Suspect]
     Active Substance: TOFACITINIB CITRATE
     Dosage: 5 MG, 2X/DAY
  4. AREXVY [Concomitant]
     Active Substance: RECOMBINANT RESPIRATORY SYNCYTIAL VIRUS PRE-FUSION F PROTEIN ANTIGEN
  5. CALCIUM [Concomitant]
     Active Substance: CALCIUM
  6. MINERALS\VITAMINS [Concomitant]
     Active Substance: MINERALS\VITAMINS
  7. FISH OIL [Concomitant]
     Active Substance: FISH OIL
  8. FLUCELVAX QUADRIVALENT NOS [Concomitant]
     Active Substance: INFLUENZA A VIRUS A/BRISBANE/10/2010 (H1N1) ANTIGEN (MDCK CELL DERIVED, PROPIOLACTONE INACTIVATED)\I
  9. GLUCOSAMINE CHONDROITIN [CHONDROITIN SULFATE;GLUCOSAMINE] [Concomitant]
  10. MICARDIS [Concomitant]
     Active Substance: TELMISARTAN
  11. NAPROSYN [Concomitant]
     Active Substance: NAPROXEN
  12. HERBALS\TURMERIC [Concomitant]
     Active Substance: HERBALS\TURMERIC
  13. VITAMIN D3 [Concomitant]
     Active Substance: CHOLECALCIFEROL
  14. PREDNISONE [Concomitant]
     Active Substance: PREDNISONE
  15. METHOTREXATE SODIUM [Concomitant]
     Active Substance: METHOTREXATE SODIUM

REACTIONS (8)
  - Hepatitis B [Unknown]
  - Thrombosis [Not Recovered/Not Resolved]
  - Arthralgia [Not Recovered/Not Resolved]
  - Joint swelling [Not Recovered/Not Resolved]
  - Peripheral swelling [Not Recovered/Not Resolved]
  - Pain in extremity [Not Recovered/Not Resolved]
  - Paraesthesia [Not Recovered/Not Resolved]
  - Nasopharyngitis [Recovered/Resolved]

NARRATIVE: CASE EVENT DATE: 20241101
